FAERS Safety Report 5417840-2 (Version None)
Quarter: 2007Q3

REPORT INFORMATION
  Report Type: 
  Country: None (occurrence: None)
  Receive Date: 20070815
  Receipt Date: 20070403
  Transmission Date: 20080115
  Serious: Yes (Death, Hospitalization)
  Sender: FDA-Public Use
  Company Number: 163-21880-07040186

PATIENT
  Age: 63 Year
  Sex: Male

DRUGS (12)
  1. REVLIMID [Suspect]
     Indication: MULTIPLE MYELOMA
     Dosage: 25 MG, QD, ORAL; 25 MG, DAILY X3 WEEKS/ 1 WEEK OFF, ORAL
     Route: 048
     Dates: start: 20060901, end: 20070301
  2. REVLIMID [Suspect]
     Indication: MULTIPLE MYELOMA
     Dosage: 25 MG, QD, ORAL; 25 MG, DAILY X3 WEEKS/ 1 WEEK OFF, ORAL
     Route: 048
     Dates: start: 20070130, end: 20070301
  3. DEXAMETHASONE TAB [Suspect]
     Indication: MULTIPLE MYELOMA
     Dosage: 40 MG, PULSE X4 DAYS EACH MONTH
     Dates: start: 20060901, end: 20070101
  4. ASPIRIN [Concomitant]
  5. FINASTERIDE [Concomitant]
  6. ONDANESTRON (ONDANESTRON) [Concomitant]
  7. PINDOLOL [Concomitant]
  8. FLORINEF [Concomitant]
  9. SIMVASTATIN [Concomitant]
  10. MORPHINE [Concomitant]
  11. DOCUSATE (DOCUSATE) [Concomitant]
  12. PHENERGAN HCL [Concomitant]

REACTIONS (20)
  - ACUTE RESPIRATORY FAILURE [None]
  - ASTHENIA [None]
  - BLOOD CALCIUM DECREASED [None]
  - BLOOD CHLORIDE INCREASED [None]
  - BLOOD GLUCOSE INCREASED [None]
  - BLOOD POTASSIUM DECREASED [None]
  - CHEST PAIN [None]
  - ELECTROCARDIOGRAM POOR R-WAVE PROGRESSION [None]
  - FAILURE TO THRIVE [None]
  - FEBRILE NEUTROPENIA [None]
  - FRACTURED SACRUM [None]
  - LEFT ATRIAL DILATATION [None]
  - MALIGNANT NEOPLASM PROGRESSION [None]
  - MENTAL STATUS CHANGES [None]
  - METASTASES TO BONE [None]
  - METASTASIS [None]
  - METASTATIC NEOPLASM [None]
  - PANCYTOPENIA [None]
  - PLEURAL EFFUSION [None]
  - PNEUMONIA [None]
